FAERS Safety Report 15050360 (Version 1)
Quarter: 2018Q3

REPORT INFORMATION
  Report Type: Spontaneous
  Country: US (occurrence: US)
  Receive Date: 20180622
  Receipt Date: 20180622
  Transmission Date: 20181010
  Serious: No
  Sender: FDA-Public Use
  Company Number: US-CURIUM PHARMACEUTICALS-201800131

PATIENT
  Age: 39 Year
  Sex: Female

DRUGS (4)
  1. SODIUM IODIDE I 123 [Suspect]
     Active Substance: SODIUM IODIDE I-123
     Indication: THYROID MASS
     Route: 048
     Dates: start: 20180319, end: 20180319
  2. ACETAMINOPHEN. [Concomitant]
     Active Substance: ACETAMINOPHEN
     Indication: PRODUCT USED FOR UNKNOWN INDICATION
     Route: 065
  3. SODIUM PERTECHNETATE TC 99M [Suspect]
     Active Substance: TECHNETIUM TC-99M SODIUM PERTECHNETATE
     Indication: THYROID MASS
     Route: 051
     Dates: start: 20180320, end: 20180320
  4. METHYLPHENIDATE. [Concomitant]
     Active Substance: METHYLPHENIDATE
     Indication: PRODUCT USED FOR UNKNOWN INDICATION
     Route: 065

REACTIONS (7)
  - Skin tightness [Recovered/Resolved]
  - Throat tightness [Recovered/Resolved]
  - Rash [Recovered/Resolved]
  - Rash [None]
  - Dyspnoea [Recovered/Resolved]
  - Rash erythematous [None]
  - Flushing [Recovered/Resolved]

NARRATIVE: CASE EVENT DATE: 20180320
